FAERS Safety Report 4621142-1 (Version None)
Quarter: 2005Q1

REPORT INFORMATION
  Report Type: 
  Country: None (occurrence: None)
  Receive Date: 20050328
  Receipt Date: 20050311
  Transmission Date: 20050727
  Serious: Yes (Hospitalization)
  Sender: FDA-Public Use
  Company Number: 430005M05FRA

PATIENT
  Age: 19 Month
  Sex: Male

DRUGS (10)
  1. NOVANTRONE [Suspect]
     Indication: ACUTE MYELOID LEUKAEMIA
     Dosage: 6 MG, 1 IN 1 DAYS, INTRAVENOUS
     Route: 042
     Dates: start: 20050106, end: 20050110
  2. AMIKLIN (AMIKACIN) [Concomitant]
  3. CYTARABINE [Concomitant]
  4. ROCEPHIN [Concomitant]
  5. NUBAIN [Concomitant]
  6. FASTURTEC    (RASBURICASE) [Concomitant]
  7. JOSACINE [Concomitant]
  8. TAZOCILLINE        (PIP/TAZO) [Concomitant]
  9. MOTILIUM         (DOMPERIDONE MALEATE) [Concomitant]
  10. ONDANSETRON HYDROCHLORIDE [Concomitant]

REACTIONS (2)
  - NODAL RHYTHM [None]
  - SINOATRIAL BLOCK [None]
